FAERS Safety Report 22056118 (Version 1)
Quarter: 2023Q1

REPORT INFORMATION
  Report Type: Spontaneous
  Country: US (occurrence: US)
  Receive Date: 20230302
  Receipt Date: 20230302
  Transmission Date: 20230417
  Serious: No
  Sender: FDA-Public Use
  Company Number: US-BRAINTREE LABORATORIES, INC.-2022BTE00949

PATIENT
  Age: 57 Year
  Sex: Female
  Weight: 68.027 kg

DRUGS (2)
  1. SUTAB [Suspect]
     Active Substance: MAGNESIUM SULFATE\POTASSIUM CHLORIDE\SODIUM SULFATE
     Indication: Colonoscopy
     Dosage: 2 X 12 TABLETS, 1X
     Route: 048
     Dates: start: 20221113, end: 20221114
  2. BENADRYL [Suspect]
     Active Substance: DIPHENHYDRAMINE HYDROCHLORIDE
     Dosage: 25 MG, TWICE
     Route: 048
     Dates: start: 20221113, end: 20221114

REACTIONS (6)
  - Feeling hot [Not Recovered/Not Resolved]
  - Hypersensitivity [Unknown]
  - Pruritus [Recovered/Resolved]
  - Urticaria [Not Recovered/Not Resolved]
  - Vomiting [Recovered/Resolved]
  - Wrong technique in product usage process [Recovered/Resolved]

NARRATIVE: CASE EVENT DATE: 20221113
